FAERS Safety Report 11438349 (Version 1)
Quarter: 2015Q3

REPORT INFORMATION
  Report Type: Spontaneous
  Country: US (occurrence: US)
  Receive Date: 20150901
  Receipt Date: 20150901
  Transmission Date: 20151125
  Serious: No
  Sender: FDA-Public Use
  Company Number: US-PAR PHARMACEUTICAL, INC-2015SCPR010487

PATIENT

DRUGS (2)
  1. ESGIC PLUS [Concomitant]
     Indication: MIGRAINE
     Dosage: UNK UNK, PRN
     Route: 048
  2. DELESTROGEN [Suspect]
     Active Substance: ESTRADIOL VALERATE
     Indication: HORMONE LEVEL ABNORMAL
     Dosage: 1 ML, MONTHLY
     Route: 030
     Dates: end: 201504

REACTIONS (3)
  - Headache [Not Recovered/Not Resolved]
  - Blood pressure increased [Not Recovered/Not Resolved]
  - Malaise [Not Recovered/Not Resolved]

NARRATIVE: CASE EVENT DATE: 201411
